FAERS Safety Report 7389569-5 (Version None)
Quarter: 2011Q2

REPORT INFORMATION
  Report Type: 
  Country: None (occurrence: None)
  Receive Date: 20110401
  Receipt Date: 20110329
  Transmission Date: 20111010
  Serious: Yes (Death)
  Sender: FDA-Public Use
  Company Number: PHHY2011US25832

PATIENT
  Sex: Female

DRUGS (5)
  1. ZOLOFT [Concomitant]
     Dosage: 100 MG, UNK
  2. FOLIC ACID [Concomitant]
  3. PENICILLIN VK [Concomitant]
     Dosage: 500 MG, UNK
  4. HYDROXYUREA [Concomitant]
     Dosage: 500 MG, UNK
  5. EXJADE [Suspect]
     Dosage: 2000 MG/ DAY
     Route: 048

REACTIONS (1)
  - DEATH [None]
